FAERS Safety Report 20891189 (Version 2)
Quarter: 2022Q2

REPORT INFORMATION
  Report Type: Spontaneous
  Country: CZ (occurrence: CZ)
  Receive Date: 20220530
  Receipt Date: 20220607
  Transmission Date: 20220720
  Serious: Yes (Hospitalization, Other)
  Sender: FDA-Public Use
  Company Number: CZ-ROCHE-3096205

PATIENT
  Age: 55 Year
  Sex: Female

DRUGS (6)
  1. RITUXIMAB [Suspect]
     Active Substance: RITUXIMAB
     Indication: Follicular lymphoma
     Dosage: UNK
     Route: 065
     Dates: start: 202012
  2. OBINUTUZUMAB [Suspect]
     Active Substance: OBINUTUZUMAB
     Indication: Follicular lymphoma
     Dosage: EVERY 8 WEEKS
     Route: 042
     Dates: start: 202012
  3. CYCLOPHOSPHAMIDE [Suspect]
     Active Substance: CYCLOPHOSPHAMIDE
     Indication: Follicular lymphoma
     Dosage: EVERY 8 WEEKS
     Route: 065
     Dates: start: 202012
  4. PREDNISONE [Suspect]
     Active Substance: PREDNISONE
     Indication: Follicular lymphoma
     Dosage: UNK
     Route: 065
     Dates: start: 202012
  5. DOXORUBICIN [Suspect]
     Active Substance: DOXORUBICIN
     Indication: Follicular lymphoma
     Dosage: UNK
     Route: 065
     Dates: start: 202012
  6. VINCRISTINE [Suspect]
     Active Substance: VINCRISTINE
     Indication: Follicular lymphoma
     Dosage: UNK
     Route: 065
     Dates: start: 202012

REACTIONS (7)
  - Cough [Unknown]
  - Dyspnoea exertional [Unknown]
  - Relapsing fever [Unknown]
  - Neoplasm progression [Unknown]
  - Post-acute COVID-19 syndrome [Unknown]
  - Pyrexia [Unknown]
  - SARS-CoV-2 test positive [Unknown]

NARRATIVE: CASE EVENT DATE: 20220101
